FAERS Safety Report 13776200 (Version 1)
Quarter: 2017Q3

REPORT INFORMATION
  Report Type: Spontaneous
  Country: US (occurrence: US)
  Receive Date: 20170721
  Receipt Date: 20170721
  Transmission Date: 20171127
  Serious: Yes (Other)
  Sender: FDA-Public Use
  Company Number: US-PFIZER INC-2017315181

PATIENT
  Age: 79 Year
  Sex: Male
  Weight: 98 kg

DRUGS (3)
  1. FIBERCON [Suspect]
     Active Substance: CALCIUM POLYCARBOPHIL
     Dosage: 4 DF
     Dates: start: 2017
  2. FIBERCON [Suspect]
     Active Substance: CALCIUM POLYCARBOPHIL
     Dosage: 30 DF
     Dates: start: 2017
  3. FIBERCON [Suspect]
     Active Substance: CALCIUM POLYCARBOPHIL
     Indication: DIARRHOEA
     Dosage: 2 DF
     Dates: start: 2017

REACTIONS (8)
  - Haematochezia [Unknown]
  - Dyspepsia [Unknown]
  - Intentional product misuse [Unknown]
  - Condition aggravated [Not Recovered/Not Resolved]
  - Drug ineffective [Not Recovered/Not Resolved]
  - Defaecation urgency [Unknown]
  - Diarrhoea [Not Recovered/Not Resolved]
  - Overdose [Not Recovered/Not Resolved]

NARRATIVE: CASE EVENT DATE: 2017
